FAERS Safety Report 6019241-5 (Version None)
Quarter: 2009Q1

REPORT INFORMATION
  Report Type: 
  Country: None (occurrence: None)
  Receive Date: 20081224
  Receipt Date: 20081222
  Transmission Date: 20090719
  Serious: Yes (Hospitalization)
  Sender: FDA-Public Use
  Company Number: FR-BRISTOL-MYERS SQUIBB COMPANY-14453187

PATIENT
  Age: 44 Year
  Sex: Female

DRUGS (4)
  1. IRBESARTAN [Suspect]
  2. LANSOPRAZOLE [Suspect]
     Dates: end: 20081101
  3. NEURONTIN [Suspect]
     Dates: end: 20081101
  4. MIZOLLEN [Suspect]
     Dates: end: 20081101

REACTIONS (1)
  - SKIN HYPERPIGMENTATION [None]
